FAERS Safety Report 4847808-6 (Version None)
Quarter: 2005Q4

REPORT INFORMATION
  Report Type: 
  Country: None (occurrence: None)
  Receive Date: 20051207
  Receipt Date: 20051130
  Transmission Date: 20060501
  Serious: Yes (Hospitalization, Disabling, Other)
  Sender: FDA-Public Use
  Company Number: US-MERCK-0512USA00351

PATIENT
  Sex: Female
  Weight: 145 kg

DRUGS (2)
  1. VIOXX [Suspect]
     Indication: OSTEOPOROSIS
     Route: 048
     Dates: end: 20011001
  2. VIOXX [Suspect]
     Indication: ARTHRITIS
     Route: 048
     Dates: end: 20011001

REACTIONS (7)
  - CARDIAC DISORDER [None]
  - CEREBROVASCULAR ACCIDENT [None]
  - COLON INJURY [None]
  - COLONOSCOPY [None]
  - GASTRIC BYPASS [None]
  - JOINT INJURY [None]
  - OBESITY [None]
